FAERS Safety Report 12074399 (Version 1)
Quarter: 2016Q1

REPORT INFORMATION
  Report Type: Spontaneous
  Country: US (occurrence: US)
  Receive Date: 20160212
  Receipt Date: 20160212
  Transmission Date: 20160526
  Serious: No
  Sender: FDA-Public Use
  Company Number: US-AQUA-2015AQU000046

PATIENT
  Age: 72 Year
  Sex: Female

DRUGS (4)
  1. DOXYCYCLINE                        /00055702/ [Suspect]
     Active Substance: DOXYCYCLINE
     Indication: ROSACEA
  2. MONODOX [Suspect]
     Active Substance: DOXYCYCLINE
     Indication: OCULAR ROSACEA
     Dosage: 1 DF, QD
     Route: 048
     Dates: start: 1990
  3. MONODOX [Suspect]
     Active Substance: DOXYCYCLINE
     Indication: ROSACEA
  4. DOXYCYCLINE                        /00055702/ [Suspect]
     Active Substance: DOXYCYCLINE
     Indication: OCULAR ROSACEA

REACTIONS (5)
  - Off label use [Unknown]
  - Ocular hyperaemia [Unknown]
  - Eye swelling [Unknown]
  - Eye infection [Unknown]
  - Corneal graft rejection [Unknown]

NARRATIVE: CASE EVENT DATE: 1990
